FAERS Safety Report 5036115-7 (Version None)
Quarter: 2006Q2

REPORT INFORMATION
  Report Type: 
  Country: None (occurrence: None)
  Receive Date: 20060601
  Receipt Date: 20060420
  Transmission Date: 20061013
  Serious: No
  Sender: FDA-Public Use
  Company Number: US200604003401

PATIENT
  Age: 33 Year
  Sex: Female

DRUGS (3)
  1. CYMBALTA [Suspect]
     Indication: DEPRESSION
     Dosage: 60 MG
     Dates: start: 20050101
  2. ZONEGRAN [Concomitant]
  3. WELLBUTRIN [Concomitant]

REACTIONS (8)
  - FATIGUE [None]
  - HANGOVER [None]
  - IMPATIENCE [None]
  - LETHARGY [None]
  - PSYCHOPATHIC PERSONALITY [None]
  - SLEEP DISORDER [None]
  - SOMNOLENCE [None]
  - STRESS [None]
